FAERS Safety Report 9872940 (Version 2)
Quarter: 2014Q1

REPORT INFORMATION
  Report Type: Spontaneous
  Country: US (occurrence: US)
  Receive Date: 20140206
  Receipt Date: 20140206
  Transmission Date: 20141002
  Serious: No
  Sender: FDA-Public Use
  Company Number: US-ACORDA-ACO_28465_2011

PATIENT
  Age: 46 Year
  Sex: Male
  Weight: 79.37 kg

DRUGS (4)
  1. AMPYRA [Suspect]
     Indication: GAIT DISTURBANCE
     Dosage: 10 MG, BID
     Route: 048
     Dates: start: 20111209
  2. AMPYRA [Suspect]
     Indication: MULTIPLE SCLEROSIS
  3. COPAXONE [Concomitant]
     Indication: PRODUCT USED FOR UNKNOWN INDICATION
     Dosage: UNK
     Dates: start: 2009
  4. LEXAPRO [Concomitant]
     Dosage: UNK

REACTIONS (2)
  - Dyspepsia [Not Recovered/Not Resolved]
  - Nausea [Recovered/Resolved]
